FAERS Safety Report 9088974 (Version 2)
Quarter: 2013Q1

REPORT INFORMATION
  Report Type: Spontaneous
  Country: GB (occurrence: GB)
  Receive Date: 20130201
  Receipt Date: 20130318
  Transmission Date: 20140127
  Serious: Yes (Hospitalization, Other)
  Sender: FDA-Public Use
  Company Number: PHFR2013GB000901

PATIENT
  Age: 65 Year
  Sex: Female

DRUGS (5)
  1. AFINITOR [Suspect]
     Indication: METASTATIC RENAL CELL CARCINOMA
     Dosage: 10 MG, DAILY
     Route: 048
     Dates: start: 20120730
  2. AFINITOR [Suspect]
     Dosage: UNK
  3. LANSOPRAZOLE [Concomitant]
     Dosage: UNK
     Route: 048
  4. THYROXINE [Concomitant]
     Route: 048
  5. LOPERAMIDE [Concomitant]
     Route: 048

REACTIONS (12)
  - Pneumocystis jirovecii pneumonia [Unknown]
  - Lower respiratory tract infection [Recovered/Resolved]
  - Pyrexia [Unknown]
  - Cough [Unknown]
  - Body temperature increased [Unknown]
  - White blood cell count decreased [Unknown]
  - Neutrophil count decreased [Unknown]
  - Metastatic renal cell carcinoma [Unknown]
  - Malignant neoplasm progression [Unknown]
  - Metastases to central nervous system [Unknown]
  - Malaise [Unknown]
  - Confusional state [Recovered/Resolved]
